FAERS Safety Report 17443312 (Version 1)
Quarter: 2020Q1

REPORT INFORMATION
  Report Type: Report from Study
  Country: US (occurrence: US)
  Receive Date: 20200221
  Receipt Date: 20200221
  Transmission Date: 20200409
  Serious: Yes (Hospitalization)
  Sender: FDA-Public Use
  Company Number: US-BIOGEN-2018BI00667688

PATIENT
  Sex: Female

DRUGS (1)
  1. TECFIDERA [Suspect]
     Active Substance: DIMETHYL FUMARATE
     Indication: MULTIPLE SCLEROSIS
     Dosage: MAINTENANCE DOSE
     Route: 050
     Dates: start: 20181026, end: 20190501

REACTIONS (18)
  - Neck pain [Recovered/Resolved]
  - Fatigue [Unknown]
  - Sleep disorder [Unknown]
  - Heart rate increased [Unknown]
  - Night sweats [Recovered/Resolved]
  - Paraesthesia [Recovered/Resolved]
  - Urticaria [Unknown]
  - Weight decreased [Not Recovered/Not Resolved]
  - Drug intolerance [Unknown]
  - Hypertension [Recovered/Resolved]
  - Decreased appetite [Not Recovered/Not Resolved]
  - Headache [Recovered/Resolved]
  - Abdominal pain upper [Unknown]
  - Hyperhidrosis [Unknown]
  - Anxiety [Unknown]
  - Vomiting [Recovered/Resolved]
  - Flushing [Recovered/Resolved]
  - Hot flush [Recovered/Resolved]
